FAERS Safety Report 5048687-7 (Version None)
Quarter: 2006Q3

REPORT INFORMATION
  Report Type: 
  Country: None (occurrence: None)
  Receive Date: 20060705
  Receipt Date: 20060623
  Transmission Date: 20061208
  Serious: Yes (Hospitalization, Other)
  Sender: FDA-Public Use
  Company Number: FRWYE778925JUN06

PATIENT
  Age: 18 Month
  Sex: Male

DRUGS (3)
  1. ADVIL [Suspect]
     Indication: EAR INFECTION
     Dosage: ORAL
     Route: 048
     Dates: start: 20060331, end: 20060404
  2. ACETAMINOPHEN [Concomitant]
  3. CEFPODOXIME PROXETIL [Concomitant]

REACTIONS (5)
  - BONE SCAN ABNORMAL [None]
  - CELLULITIS [None]
  - METATARSALGIA [None]
  - OSTEOMYELITIS [None]
  - RASH GENERALISED [None]
